FAERS Safety Report 8972163 (Version 1)
Quarter: 2012Q4

REPORT INFORMATION
  Report Type: 
  Country: JP (occurrence: JP)
  Receive Date: 20121218
  Receipt Date: 20121218
  Transmission Date: 20130627
  Serious: Yes (Other)
  Sender: FDA-Public Use
  Company Number: JP-BRISTOL-MYERS SQUIBB COMPANY-17201948

PATIENT
  Age: 5 None
  Sex: Male

DRUGS (1)
  1. TAXOL [Suspect]

REACTIONS (1)
  - Lung disorder [Unknown]
